FAERS Safety Report 6591072-7 (Version None)
Quarter: 2010Q1

REPORT INFORMATION
  Report Type: 
  Country: None (occurrence: None)
  Receive Date: 20100219
  Receipt Date: 20100210
  Transmission Date: 20100710
  Serious: Yes (Hospitalization)
  Sender: FDA-Public Use
  Company Number: NL-SANOFI-AVENTIS-2010SA008238

PATIENT
  Age: 48 Year
  Sex: Male

DRUGS (1)
  1. RILUTEK [Suspect]
     Indication: MOTOR NEURONE DISEASE
     Route: 048
     Dates: start: 20091230

REACTIONS (5)
  - DIZZINESS [None]
  - DRY MOUTH [None]
  - HEADACHE [None]
  - MYALGIA [None]
  - PYREXIA [None]
